FAERS Safety Report 18838940 (Version 2)
Quarter: 2021Q1

REPORT INFORMATION
  Report Type: Spontaneous
  Country: US (occurrence: US)
  Receive Date: 20210203
  Receipt Date: 20210222
  Transmission Date: 20210419
  Serious: No
  Sender: FDA-Public Use
  Company Number: US-PFIZER INC-2021089734

PATIENT
  Age: 60 Year
  Sex: Female

DRUGS (2)
  1. IBRANCE [Suspect]
     Active Substance: PALBOCICLIB
     Dosage: 125 MG
     Route: 048
     Dates: start: 20210124
  2. IBRANCE [Suspect]
     Active Substance: PALBOCICLIB
     Dosage: 125 MG
     Route: 048
     Dates: start: 20210118

REACTIONS (8)
  - Dry mouth [Unknown]
  - Feeling abnormal [Unknown]
  - Anxiety [Unknown]
  - Fatigue [Unknown]
  - Burning sensation [Unknown]
  - Pruritus [Unknown]
  - Decreased appetite [Unknown]
  - Hot flush [Unknown]

NARRATIVE: CASE EVENT DATE: 2021
